FAERS Safety Report 4854530-9 (Version None)
Quarter: 2005Q4

REPORT INFORMATION
  Report Type: 
  Country: None (occurrence: None)
  Receive Date: 20051213
  Receipt Date: 20051201
  Transmission Date: 20060501
  Serious: Yes (Death, Life-Threatening, Hospitalization, Other)
  Sender: FDA-Public Use
  Company Number: 2004088700

PATIENT
  Age: 71 Year
  Sex: Male
  Weight: 76 kg

DRUGS (5)
  1. LIPITOR [Suspect]
     Indication: HEART DISEASE CONGENITAL
     Dosage: 20 MG (20 MG, 1 IN 1 D) ORAL
     Route: 048
     Dates: start: 20040504, end: 20040616
  2. SOTALOL HCL [Concomitant]
  3. ASPIRIN [Concomitant]
  4. ARTHROTEC [Concomitant]
  5. THYROXINE (LEVOTHYROXINE) [Concomitant]

REACTIONS (14)
  - ARRHYTHMIA [None]
  - ATRIAL FLUTTER [None]
  - CHOLESTASIS [None]
  - GENERAL PHYSICAL HEALTH DETERIORATION [None]
  - HEPATIC FUNCTION ABNORMAL [None]
  - HEPATITIS NON-A NON-B NON-C [None]
  - HEPATORENAL FAILURE [None]
  - INTERNATIONAL NORMALISED RATIO INCREASED [None]
  - LUNG ABSCESS [None]
  - MULTI-ORGAN FAILURE [None]
  - RENAL TUBULAR NECROSIS [None]
  - RESPIRATORY MONILIASIS [None]
  - RHABDOMYOLYSIS [None]
  - SEPSIS [None]
